FAERS Safety Report 14319996 (Version 1)
Quarter: 2017Q4

REPORT INFORMATION
  Report Type: Spontaneous
  Country: US (occurrence: US)
  Receive Date: 20171221
  Receipt Date: 20171221
  Transmission Date: 20180321
  Serious: Yes (Other)
  Sender: FDA-Public Use
  Company Number: None

PATIENT
  Sex: Female

DRUGS (1)
  1. SIMPONI [Suspect]
     Active Substance: GOLIMUMAB
     Indication: RHEUMATOID ARTHRITIS
     Route: 058
     Dates: start: 20171018

REACTIONS (8)
  - Chest discomfort [None]
  - Headache [None]
  - Pain [None]
  - Muscle tightness [None]
  - Asthenia [None]
  - Fatigue [None]
  - Dyspnoea [None]
  - Hypersensitivity [None]
